FAERS Safety Report 21204357 (Version 3)
Quarter: 2022Q4

REPORT INFORMATION
  Report Type: Report from Study
  Country: BE (occurrence: BE)
  Receive Date: 20220812
  Receipt Date: 20221020
  Transmission Date: 20230112
  Serious: Yes (Hospitalization, Disabling)
  Sender: FDA-Public Use
  Company Number: BE-BIOGEN-2022BI01146972

PATIENT
  Age: 71 Year
  Sex: Female

DRUGS (1)
  1. TYSABRI [Suspect]
     Active Substance: NATALIZUMAB
     Indication: Relapsing-remitting multiple sclerosis
     Route: 050
     Dates: start: 20080228

REACTIONS (2)
  - Multiple sclerosis [Recovered/Resolved with Sequelae]
  - Back pain [Recovered/Resolved with Sequelae]

NARRATIVE: CASE EVENT DATE: 20220804
